FAERS Safety Report 19243051 (Version 1)
Quarter: 2021Q2

REPORT INFORMATION
  Report Type: Report from Study
  Country: GB (occurrence: GB)
  Receive Date: 20210511
  Receipt Date: 20210511
  Transmission Date: 20210717
  Serious: Yes (Other)
  Sender: FDA-Public Use
  Company Number: NVSC2020GB018623

PATIENT
  Sex: Female

DRUGS (1)
  1. HYRIMOZ [Suspect]
     Active Substance: ADALIMUMAB-ADAZ
     Indication: ANKYLOSING SPONDYLITIS
     Dosage: 1 DF (40MG/0.8ML), Q2W/ 2/52
     Route: 058
     Dates: start: 20190826

REACTIONS (9)
  - Infection [Unknown]
  - Abdominal pain [Unknown]
  - Illness [Unknown]
  - Nasopharyngitis [Unknown]
  - Fatigue [Unknown]
  - Malaise [Unknown]
  - Abdominal discomfort [Unknown]
  - Gastric haemorrhage [Unknown]
  - Blood test abnormal [Unknown]
